FAERS Safety Report 5274486-7 (Version None)
Quarter: 2007Q1

REPORT INFORMATION
  Report Type: 
  Country: None (occurrence: None)
  Receive Date: 20070323
  Receipt Date: 20070312
  Transmission Date: 20070707
  Serious: Yes (Other)
  Sender: FDA-Public Use
  Company Number: US-PFIZER INC-2007019733

PATIENT
  Sex: Female
  Weight: 68 kg

DRUGS (3)
  1. CHANTIX [Suspect]
     Indication: EX-SMOKER
     Dates: start: 20070221, end: 20070311
  2. ALLEGRA D 24 HOUR [Concomitant]
     Indication: SINUS DISORDER
  3. VITAMINS [Concomitant]

REACTIONS (9)
  - BLOOD GLUCOSE INCREASED [None]
  - CONSTIPATION [None]
  - DIZZINESS [None]
  - FATIGUE [None]
  - FLATULENCE [None]
  - HEART RATE INCREASED [None]
  - NAUSEA [None]
  - SOMNOLENCE [None]
  - STOMACH DISCOMFORT [None]
